FAERS Safety Report 9237348 (Version 1)
Quarter: 2013Q2

REPORT INFORMATION
  Report Type: Spontaneous
  Country: US (occurrence: US)
  Receive Date: 20130417
  Receipt Date: 20130417
  Transmission Date: 20140414
  Serious: Yes (Other)
  Sender: FDA-Public Use
  Company Number: US-US-EMD SERONO, INC.-7093699

PATIENT
  Age: 63 Year
  Sex: Male

DRUGS (3)
  1. REBIF [Suspect]
     Indication: MULTIPLE SCLEROSIS
     Route: 058
     Dates: start: 20040922
  2. LIPITOR [Concomitant]
     Indication: BLOOD CHOLESTEROL
  3. SIMVASTATIN [Concomitant]
     Indication: BLOOD CHOLESTEROL

REACTIONS (3)
  - Heart rate decreased [Recovering/Resolving]
  - Atrial fibrillation [Recovering/Resolving]
  - Dizziness [Recovering/Resolving]
